FAERS Safety Report 9896664 (Version 1)
Quarter: 2014Q1

REPORT INFORMATION
  Report Type: Spontaneous
  Country: US (occurrence: US)
  Receive Date: 20140213
  Receipt Date: 20140213
  Transmission Date: 20141002
  Serious: No
  Sender: FDA-Public Use
  Company Number: US-BRISTOL-MYERS SQUIBB COMPANY-18882738

PATIENT
  Sex: Female

DRUGS (1)
  1. ORENCIA [Suspect]
     Dosage: LAST INF IN MAY2013
     Route: 042

REACTIONS (3)
  - Headache [Recovered/Resolved]
  - Fatigue [Unknown]
  - Pain in extremity [Unknown]
